FAERS Safety Report 17989896 (Version 2)
Quarter: 2020Q3

REPORT INFORMATION
  Report Type: Report from Study
  Country: IT (occurrence: IT)
  Receive Date: 20200707
  Receipt Date: 20200721
  Transmission Date: 20201103
  Serious: Yes (Hospitalization, Other)
  Sender: FDA-Public Use
  Company Number: IT-MYLANLABS-2020M1060293

PATIENT
  Age: 18 Year
  Sex: Female

DRUGS (5)
  1. SERENASE                           /00027401/ [Interacting]
     Active Substance: HALOPERIDOL
     Indication: PERSONALITY DISORDER
     Dosage: 10 MILLIGRAM, QD
     Route: 048
     Dates: start: 20190624, end: 20200518
  2. COCAINE [Suspect]
     Active Substance: COCAINE
     Indication: PRODUCT USED FOR UNKNOWN INDICATION
     Dosage: UNK
  3. FLUOXETINE [Suspect]
     Active Substance: FLUOXETINE HYDROCHLORIDE
     Indication: DEPRESSION
     Dosage: 40 MILLIGRAM, QD
     Route: 048
     Dates: start: 20200101, end: 20200518
  4. QUETIAPINE. [Interacting]
     Active Substance: QUETIAPINE
     Indication: AGITATION
     Dosage: 600 MILLIGRAM, QD
     Route: 048
     Dates: start: 20200101, end: 20200518
  5. AKINETON                           /00079503/ [Interacting]
     Active Substance: BIPERIDEN LACTATE
     Indication: PARKINSONISM
     Dosage: 1 DOSAGE FORM, QD
     Route: 048
     Dates: start: 20200101, end: 20200518

REACTIONS (3)
  - Psychomotor hyperactivity [Recovering/Resolving]
  - Drug abuse [Recovering/Resolving]
  - Drug interaction [Recovering/Resolving]

NARRATIVE: CASE EVENT DATE: 20200517
